FAERS Safety Report 12537365 (Version 3)
Quarter: 2017Q3

REPORT INFORMATION
  Report Type: Spontaneous
  Country: TR (occurrence: TR)
  Receive Date: 20160707
  Receipt Date: 20170802
  Transmission Date: 20171127
  Serious: Yes (Other)
  Sender: FDA-Public Use
  Company Number: TR-PFIZER INC-2016328599

PATIENT
  Age: 71 Year
  Sex: Male

DRUGS (1)
  1. CEFTRIAXONE SODIUM. [Suspect]
     Active Substance: CEFTRIAXONE SODIUM
     Indication: WOUND INFECTION
     Dosage: 2 G, DAILY
     Route: 042

REACTIONS (1)
  - Status epilepticus [Recovering/Resolving]
